FAERS Safety Report 6273289-4 (Version None)
Quarter: 2009Q3

REPORT INFORMATION
  Report Type: 
  Country: None (occurrence: None)
  Receive Date: 20090720
  Receipt Date: 20090708
  Transmission Date: 20100115
  Serious: Yes (Hospitalization, Other)
  Sender: FDA-Public Use
  Company Number: US-ROCHE-628297

PATIENT
  Sex: Female

DRUGS (6)
  1. MYCOPHENOLATE MOFETIL [Suspect]
     Indication: PRIMARY PROGRESSIVE MULTIPLE SCLEROSIS
     Dosage: DAILY DOSES : 2DF; FORM : PILLS
     Route: 065
     Dates: start: 20080801
  2. MYCOPHENOLATE MOFETIL [Suspect]
     Dosage: DAILY DOSES : 1DF; FORM: PILLS
     Route: 065
  3. INTERFERON BETA-1B [Suspect]
     Indication: PRIMARY PROGRESSIVE MULTIPLE SCLEROSIS
     Dosage: LOT NUMBER : XA7211A; EXPIRY DATE: NOVEMBER 2009
     Route: 058
     Dates: start: 20060330
  4. INTERFERON BETA-1B [Suspect]
     Dosage: LOT NUMBER : YA0406A; EXPIRY DATE: JANUARY 2010
     Route: 058
  5. INTERFERON BETA-1B [Suspect]
     Dosage: LOT NUMBER : YA4248A; EXPIRY DATE: JUNE 2010
     Route: 058
  6. INTERFERON BETA-1B [Suspect]
     Route: 058

REACTIONS (20)
  - ARTHRALGIA [None]
  - ATROPHY [None]
  - CONTUSION [None]
  - DEHYDRATION [None]
  - DERMATITIS [None]
  - EXOSTOSIS [None]
  - FALL [None]
  - INJECTION SITE ERYTHEMA [None]
  - INJECTION SITE HAEMORRHAGE [None]
  - INJECTION SITE RASH [None]
  - JOINT SPRAIN [None]
  - MALNUTRITION [None]
  - MULTIPLE SCLEROSIS [None]
  - MUSCLE SPASTICITY [None]
  - MUSCULOSKELETAL PAIN [None]
  - PAIN IN EXTREMITY [None]
  - PERONEAL NERVE PALSY [None]
  - SNEEZING [None]
  - TENDERNESS [None]
  - WHITE BLOOD CELL COUNT DECREASED [None]
